FAERS Safety Report 5193066-5 (Version None)
Quarter: 2006Q4

REPORT INFORMATION
  Report Type: 
  Country: None (occurrence: None)
  Receive Date: 20061228
  Receipt Date: 20060331
  Transmission Date: 20070319
  Serious: No
  Sender: FDA-Public Use
  Company Number: US-GLAXOSMITHKLINE-A0599913A

PATIENT
  Age: 52 Year
  Sex: Male

DRUGS (8)
  1. AVODART [Suspect]
     Indication: BENIGN PROSTATIC HYPERPLASIA
     Dosage: .5MG PER DAY
     Route: 048
     Dates: start: 20030101
  2. UNKNOWN MEDICATION [Concomitant]
  3. PERI-COLACE [Concomitant]
  4. NITROFURANTOIN MACROCRYSTAL [Concomitant]
  5. METHENAMINE HIPPURATE [Concomitant]
  6. XANAX [Concomitant]
  7. CARDIZEM [Concomitant]
  8. ENALAPRIL MALEATE [Concomitant]

REACTIONS (6)
  - ANXIETY [None]
  - BURNING SENSATION [None]
  - CATHETER RELATED INFECTION [None]
  - CONSTIPATION [None]
  - DIARRHOEA [None]
  - EXCESSIVE MASTURBATION [None]
